FAERS Safety Report 20446573 (Version 3)
Quarter: 2022Q1

REPORT INFORMATION
  Report Type: Spontaneous
  Country: US (occurrence: None)
  Receive Date: 20220208
  Receipt Date: 20220308
  Transmission Date: 20220423
  Serious: Yes (Hospitalization)
  Sender: FDA-Public Use
  Company Number: US-ROCHE-3017658

PATIENT
  Sex: Male
  Weight: 115.32 kg

DRUGS (8)
  1. ROZLYTREK [Suspect]
     Active Substance: ENTRECTINIB
     Indication: Oesophageal carcinoma
     Dosage: 200 MG, 3 TABLETS DAILY
     Route: 048
  2. ASPIRIN [Concomitant]
     Active Substance: ASPIRIN
     Route: 048
  3. IRON [Concomitant]
     Active Substance: IRON
     Route: 048
  4. METFORMIN [Concomitant]
     Active Substance: METFORMIN HYDROCHLORIDE
  5. METOPROLOL [Concomitant]
     Active Substance: METOPROLOL
     Route: 048
  6. ROSUVASTATIN [Concomitant]
     Active Substance: ROSUVASTATIN
     Route: 048
  7. TAMSULOSIN [Concomitant]
     Active Substance: TAMSULOSIN
     Route: 048
  8. WARFARIN [Concomitant]
     Active Substance: WARFARIN
     Route: 048

REACTIONS (2)
  - Cardiac failure [Unknown]
  - Hypervolaemia [Unknown]
